FAERS Safety Report 9681118 (Version 2)
Quarter: 2014Q2

REPORT INFORMATION
  Report Type: Spontaneous
  Country: JP (occurrence: JP)
  Receive Date: 20131111
  Receipt Date: 20140522
  Transmission Date: 20141212
  Serious: Yes (Hospitalization, Other)
  Sender: FDA-Public Use
  Company Number: JP-NOVOPROD-391970

PATIENT
  Age: 48 Year
  Sex: Male
  Weight: 63 kg

DRUGS (3)
  1. VICTOZA HIKACHU INJECTION [Suspect]
     Indication: TYPE 2 DIABETES MELLITUS
     Dosage: 0.90 MG, QD
     Route: 058
     Dates: start: 20130625, end: 20130902
  2. MAGNESIUM OXIDE [Concomitant]
     Dosage: UNK
     Route: 048
  3. PURSENNID                          /00571902/ [Concomitant]
     Dosage: UNK
     Route: 048

REACTIONS (2)
  - Drug-induced liver injury [Recovering/Resolving]
  - Hepatitis viral [Recovering/Resolving]
